FAERS Safety Report 6774921-9 (Version None)
Quarter: 2010Q2

REPORT INFORMATION
  Report Type: 
  Country: None (occurrence: None)
  Receive Date: 20100617
  Receipt Date: 20100616
  Transmission Date: 20101027
  Serious: Yes (Hospitalization)
  Sender: FDA-Public Use
  Company Number: IE-AMGEN-KDC417175

PATIENT
  Sex: Female

DRUGS (11)
  1. NEULASTA [Suspect]
     Indication: CHEMOTHERAPY
     Route: 058
  2. BEVACIZUMAB [Suspect]
     Route: 042
     Dates: start: 20100312
  3. DOCETAXEL [Suspect]
     Route: 042
     Dates: start: 20100312
  4. CYCLOPHOSPHAMIDE [Suspect]
     Route: 042
     Dates: start: 20100312
  5. DOMPERIDONE [Concomitant]
     Dates: start: 20100312
  6. CODEINE SULFATE [Concomitant]
  7. ZIMOVANE [Concomitant]
  8. OXETACAINE [Concomitant]
     Dates: start: 20100510
  9. NYSTATIN [Concomitant]
     Dates: start: 20100510
  10. ACYCLOVIR [Concomitant]
     Dates: start: 20100510
  11. TRAMADOL [Concomitant]
     Dates: start: 20100401

REACTIONS (2)
  - BACK PAIN [None]
  - STOMATITIS [None]
